FAERS Safety Report 9772471 (Version 1)
Quarter: 2013Q4

REPORT INFORMATION
  Report Type: Spontaneous
  Country: TW (occurrence: None)
  Receive Date: 20131217
  Receipt Date: 20131217
  Transmission Date: 20140711
  Serious: Yes (Death)
  Sender: FDA-Public Use
  Company Number: KAD201312-001591

PATIENT
  Sex: 0

DRUGS (3)
  1. RIBAVIRIN [Suspect]
     Indication: CHRONIC HEPATITIS C
  2. PEGASYS [Suspect]
     Indication: CHRONIC HEPATITIS C
  3. PEG-INTRON [Suspect]
     Indication: CHRONIC HEPATITIS C

REACTIONS (2)
  - Cerebellar haemorrhage [None]
  - Hypertension [None]
